FAERS Safety Report 5763848-7 (Version None)
Quarter: 2008Q2

REPORT INFORMATION
  Report Type: 
  Country: None (occurrence: None)
  Receive Date: 20080606
  Receipt Date: 20080606
  Transmission Date: 20081010
  Serious: Yes (Other)
  Sender: FDA-Public Use
  Company Number: None

PATIENT
  Age: 4 Year
  Sex: Female
  Weight: 18.1439 kg

DRUGS (1)
  1. SINGULAIR [Suspect]
     Indication: RHINORRHOEA
     Dosage: 1 DAILY PO
     Route: 048
     Dates: start: 20060401, end: 20080415

REACTIONS (10)
  - ABNORMAL BEHAVIOUR [None]
  - AGGRESSION [None]
  - CONFUSIONAL STATE [None]
  - DEPRESSED MOOD [None]
  - EMOTIONAL DISORDER [None]
  - FEELING ABNORMAL [None]
  - HALLUCINATIONS, MIXED [None]
  - MOOD SWINGS [None]
  - SCREAMING [None]
  - SLEEP TERROR [None]
